FAERS Safety Report 5683693-0 (Version None)
Quarter: 2008Q1

REPORT INFORMATION
  Report Type: 
  Country: None (occurrence: None)
  Receive Date: 20080328
  Receipt Date: 20070123
  Transmission Date: 20080703
  Serious: No
  Sender: FDA-Public Use
  Company Number: US-BAYER-US-2005-021807

PATIENT
  Age: 33 Year
  Sex: Female
  Weight: 81 kg

DRUGS (1)
  1. MIRENA [Suspect]
     Route: 015
     Dates: start: 20050927, end: 20050927

REACTIONS (1)
  - MEDICATION ERROR [None]
